FAERS Safety Report 4339441-X (Version None)
Quarter: 2004Q2

REPORT INFORMATION
  Report Type: 
  Country: None (occurrence: None)
  Receive Date: 20040415
  Receipt Date: 20031127
  Transmission Date: 20050107
  Serious: Yes (Hospitalization, Other)
  Sender: FDA-Public Use
  Company Number: FR-GLAXOSMITHKLINE-B0316143A

PATIENT
  Age: 46 Year
  Sex: Female
  Weight: 55 kg

DRUGS (5)
  1. DEROXAT [Suspect]
     Route: 048
     Dates: start: 20031125
  2. PARACETAMOL + TRAMADOL [Concomitant]
     Indication: SACRAL PAIN
     Dosage: 2UNIT PER DAY
     Route: 048
     Dates: start: 20031123, end: 20031126
  3. BIPROFENID [Concomitant]
     Indication: ANTIINFLAMMATORY THERAPY
     Dosage: 2UNIT PER DAY
     Route: 048
     Dates: start: 20031101, end: 20031125
  4. TETRAZEPAM [Concomitant]
     Indication: MUSCLE RELAXANT THERAPY
     Dosage: 3UNIT PER DAY
     Route: 048
     Dates: start: 20031123, end: 20031126
  5. ZANTAC [Concomitant]
     Indication: GASTRITIS

REACTIONS (12)
  - DRUG INTERACTION [None]
  - DRY MOUTH [None]
  - FLUSHING [None]
  - GASTRITIS [None]
  - HEART RATE DECREASED [None]
  - HYPERTENSION [None]
  - MALAISE [None]
  - MEDICATION ERROR [None]
  - PALPITATIONS [None]
  - SEROTONIN SYNDROME [None]
  - SINUS TACHYCARDIA [None]
  - TACHYCARDIA [None]
